APPROVED DRUG PRODUCT: HYDROCODONE BITARTRATE AND ACETAMINOPHEN
Active Ingredient: ACETAMINOPHEN; HYDROCODONE BITARTRATE
Strength: 325MG/15ML;10MG/15ML
Dosage Form/Route: SOLUTION;ORAL
Application: A040834 | Product #001
Applicant: PHARMACEUTICAL ASSOC INC
Approved: Apr 18, 2008 | RLD: No | RS: Yes | Type: RX